FAERS Safety Report 7443579-8 (Version None)
Quarter: 2011Q2

REPORT INFORMATION
  Report Type: 
  Country: None (occurrence: None)
  Receive Date: 20110428
  Receipt Date: 20110408
  Transmission Date: 20111010
  Serious: No
  Sender: FDA-Public Use
  Company Number: US-B.I. PHARMACEUTICALS,INC./RIDGEFIELD-2011-BP-10479BP

PATIENT
  Sex: Male

DRUGS (4)
  1. LOTREL [Concomitant]
     Indication: HYPERTENSION
     Route: 048
  2. ZANTAC 150 [Suspect]
     Indication: GASTROOESOPHAGEAL REFLUX DISEASE
     Dosage: 600 MG
     Route: 048
     Dates: start: 20101101, end: 20110408
  3. FORTAMET [Concomitant]
     Indication: DIABETES MELLITUS
     Route: 048
  4. AVONEX [Concomitant]
     Indication: MULTIPLE SCLEROSIS

REACTIONS (1)
  - WEIGHT DECREASED [None]
